FAERS Safety Report 6640362-8 (Version None)
Quarter: 2010Q1

REPORT INFORMATION
  Report Type: 
  Country: None (occurrence: None)
  Receive Date: 20100318
  Receipt Date: 20100316
  Transmission Date: 20100710
  Serious: Yes (Hospitalization)
  Sender: FDA-Public Use
  Company Number: IT-TEVA-223083ISR

PATIENT
  Sex: Male

DRUGS (6)
  1. VINCRISTINE [Suspect]
     Indication: NON-HODGKIN'S LYMPHOMA
     Route: 042
     Dates: start: 20091016, end: 20091016
  2. CYCLOPHOSPHAMIDE [Suspect]
     Indication: NON-HODGKIN'S LYMPHOMA
     Route: 042
     Dates: start: 20091016, end: 20091016
  3. DOXORUBICIN HCL [Suspect]
     Indication: NON-HODGKIN'S LYMPHOMA
     Route: 042
     Dates: start: 20091016, end: 20091016
  4. SOL MEDROL (METHYLPREDNISOL) [Suspect]
     Indication: NON-HODGKIN'S LYMPHOMA
     Route: 030
     Dates: start: 20091017, end: 20091020
  5. ITRACONAZOLE [Concomitant]
     Route: 048
  6. LAMIVUDINE [Concomitant]
     Route: 048

REACTIONS (4)
  - DYSURIA [None]
  - PNEUMONIA [None]
  - PYREXIA [None]
  - URINARY TRACT INFECTION [None]
